FAERS Safety Report 10082744 (Version 2)
Quarter: 2019Q3

REPORT INFORMATION
  Report Type: Spontaneous
  Country: KR (occurrence: KR)
  Receive Date: 20140416
  Receipt Date: 20190924
  Transmission Date: 20191004
  Serious: Yes (Hospitalization)
  Sender: FDA-Public Use
  Company Number: PHHY2014KR042153

PATIENT
  Age: 11 Year
  Sex: Female

DRUGS (5)
  1. LAMOTRIGINE. [Suspect]
     Active Substance: LAMOTRIGINE
     Indication: TIC
  2. RISPERIDONE. [Concomitant]
     Active Substance: RISPERIDONE
     Indication: PRODUCT USED FOR UNKNOWN INDICATION
     Dosage: UNK
     Route: 065
  3. VALPROATE [Suspect]
     Active Substance: VALPROIC ACID
     Indication: PRODUCT USED FOR UNKNOWN INDICATION
     Dosage: UNK
     Route: 065
  4. FLUOXETIN [Concomitant]
     Active Substance: FLUOXETINE HYDROCHLORIDE
     Indication: PRODUCT USED FOR UNKNOWN INDICATION
     Dosage: UNK
     Route: 065
  5. LAMOTRIGINE. [Suspect]
     Active Substance: LAMOTRIGINE
     Indication: MAJOR DEPRESSION
     Dosage: 25 MG, PER DAY
     Route: 065

REACTIONS (19)
  - Rash maculo-papular [Recovering/Resolving]
  - Dysphagia [Unknown]
  - Blister [Recovering/Resolving]
  - Pruritus [Recovering/Resolving]
  - Mouth ulceration [Recovering/Resolving]
  - Pyuria [Recovering/Resolving]
  - Pyrexia [Recovering/Resolving]
  - Eye disorder [Recovering/Resolving]
  - Incorrect dose administered [Unknown]
  - Toxic epidermal necrolysis [Recovering/Resolving]
  - Oral pain [Recovering/Resolving]
  - Purpura [Recovering/Resolving]
  - Pain of skin [Recovering/Resolving]
  - Thrombosis [Recovering/Resolving]
  - Scab [Recovering/Resolving]
  - C-reactive protein increased [Recovering/Resolving]
  - Drug interaction [Unknown]
  - Skin lesion [Recovering/Resolving]
  - Rash erythematous [Recovering/Resolving]
